FAERS Safety Report 4886167-X (Version None)
Quarter: 2006Q1

REPORT INFORMATION
  Report Type: 
  Country: None (occurrence: None)
  Receive Date: 20060120
  Receipt Date: 20060102
  Transmission Date: 20060701
  Serious: Yes (Hospitalization)
  Sender: FDA-Public Use
  Company Number: FR-GLAXOSMITHKLINE-B0405001A

PATIENT
  Age: 75 Year
  Sex: Female

DRUGS (6)
  1. CLAMOXYL [Suspect]
     Route: 048
     Dates: start: 20051208, end: 20051216
  2. EUPHON [Suspect]
     Route: 048
     Dates: start: 20051208, end: 20051216
  3. EXOMUC [Suspect]
     Route: 048
     Dates: start: 20051208, end: 20051216
  4. NORSET [Concomitant]
     Route: 048
  5. XANAX [Concomitant]
     Route: 048
  6. HAVLANE [Concomitant]
     Indication: SLEEP DISORDER
     Route: 048

REACTIONS (4)
  - PRURITUS [None]
  - RASH MACULAR [None]
  - SKIN LESION [None]
  - TOXIC SKIN ERUPTION [None]
